FAERS Safety Report 12541559 (Version 2)
Quarter: 2016Q3

REPORT INFORMATION
  Report Type: Spontaneous
  Country: US (occurrence: US)
  Receive Date: 20160708
  Receipt Date: 20160825
  Transmission Date: 20161109
  Serious: No
  Sender: FDA-Public Use
  Company Number: US-PFIZER INC-2016305475

PATIENT
  Sex: Male
  Weight: 90 kg

DRUGS (22)
  1. BIOTIN [Concomitant]
     Active Substance: BIOTIN
     Indication: HAIR COLOUR CHANGES
     Dosage: 10000 UG, 1X/DAY, 5000 MCG PILL 2 IN THE MORNING
     Route: 048
  2. AMLODIPINE BESILATE [Concomitant]
     Active Substance: AMLODIPINE BESYLATE
     Indication: BLOOD PRESSURE ABNORMAL
     Dosage: 5 MG, 1X/DAY (1/2 A 10 MG TABLET IN THE AM)
  3. MOBIC [Concomitant]
     Active Substance: MELOXICAM
     Indication: PAIN
     Dosage: 15 MG, 1X/DAY, AT 2PM WITH FOOD
     Route: 048
  4. LYRICA [Concomitant]
     Active Substance: PREGABALIN
     Indication: NERVE INJURY
     Dosage: UNK
     Dates: start: 1999
  5. FENTANYL. [Concomitant]
     Active Substance: FENTANYL
     Indication: HEADACHE
     Dosage: 50 UG, UNK
  6. FENTANYL. [Concomitant]
     Active Substance: FENTANYL
     Indication: NECK PAIN
     Dosage: 25 UG, UNK, PER HOUR, CHANGED EVERY 3 DAYS
     Route: 062
  7. VITAMIN D /00107901/ [Concomitant]
     Active Substance: ERGOCALCIFEROL
     Indication: VITAMIN D DECREASED
     Dosage: 3000 IU, 1X/DAY, 1000 IU, 3 TABLET BY MOUTH FIRST THING IN THE MORNING
     Route: 048
  8. ACETAMINOPHEN. [Concomitant]
     Active Substance: ACETAMINOPHEN
     Indication: HEADACHE
     Dosage: 500 MG, AS NEEDED, NOT TO EXCEED 4 GRAMS PER DAY
     Route: 048
  9. ASPIRIN /00002701/ [Concomitant]
     Active Substance: ASPIRIN
     Indication: CARDIAC DISORDER
     Dosage: 81 MG, 1X/DAY, AT NIGHT
     Route: 048
  10. BACLOFEN. [Concomitant]
     Active Substance: BACLOFEN
     Indication: MUSCLE RELAXANT THERAPY
     Dosage: 10 MG, 2X/DAY
     Route: 048
  11. BENZTROPINE MESYLATE. [Concomitant]
     Active Substance: BENZTROPINE MESYLATE
     Indication: MUSCLE SPASMS
     Dosage: 0.5 MG, 1X/DAY, IN THE MORNING AND AROUND 6 PM
     Route: 048
  12. DIAZEPAM. [Concomitant]
     Active Substance: DIAZEPAM
     Indication: HEADACHE
     Dosage: 7.5 MG, DAILY, 2.5 MG IN MORNING, 5 MG AT 6 PM OR 10 PM BUT NOT BOTH 6PM AND 10PM
  13. HYDROCODONE BITARTRATE AND ACETAMINOPHEN [Concomitant]
     Active Substance: ACETAMINOPHEN\HYDROCODONE BITARTRATE
     Indication: HEADACHE
     Dosage: 1 DF, 1X/DAY, NIGHTLY AT 10 PM, [HYDROCODONE BITARTRATE 10 MG]/[ PARACETAMOL 325 MG]
  14. OSTEO BI-FLEX /01431201/ [Concomitant]
     Indication: ARTHRALGIA
     Dosage: 3 DF, DAILY, [GLUCOSAMINE HYDROCHLORIDE 1500 MG]/[ GLUCOSAMINE HYDROCHLORIDE 1250 MG]
  15. LYRICA [Concomitant]
     Active Substance: PREGABALIN
     Dosage: 300 MG, DAILY, 75 MG ONE AT 6 AM ONE, AT 2 PM, AND THEN 2 AT 10 PM
  16. HYDROCODONE BITARTRATE AND ACETAMINOPHEN [Concomitant]
     Active Substance: ACETAMINOPHEN\HYDROCODONE BITARTRATE
     Indication: NECK PAIN
  17. PRAVASTATIN. [Concomitant]
     Active Substance: PRAVASTATIN
     Indication: BLOOD CHOLESTEROL ABNORMAL
     Dosage: 80 MG, 1X/DAY, AT 6PM
     Route: 048
  18. ZOLPIDEM TARTRATE. [Concomitant]
     Active Substance: ZOLPIDEM TARTRATE
     Indication: INSOMNIA
     Dosage: 5 MG, 1X/DAY, PRIOR TO BEDTIME, NIGHTLY
     Route: 048
  19. IBUPROFEN. [Concomitant]
     Active Substance: IBUPROFEN
     Indication: PAIN
     Dosage: 400 MG, AS NEEDED, 200 MG 2 TABLETS
     Route: 048
  20. MORPHINE SULFATE. [Suspect]
     Active Substance: MORPHINE SULFATE
     Dosage: UNK
  21. KEPPRA [Concomitant]
     Active Substance: LEVETIRACETAM
     Indication: SEIZURE
     Dosage: 1500 MG, 2X/DAY, TWO 750 MG TABLET, 6 IN THE MORNING AND 6 AT NIGHT
     Route: 048
  22. METFORMIN HCL [Concomitant]
     Active Substance: METFORMIN HYDROCHLORIDE
     Indication: DIABETES MELLITUS
     Dosage: 500 MG, 2X/DAY, 1000MG PILL, 1/2 AT 6 AM AND 1/2 AT 6PM
     Route: 048

REACTIONS (2)
  - Drug ineffective [Unknown]
  - Drug tolerance increased [Unknown]
